FAERS Safety Report 9381278 (Version 2)
Quarter: 2013Q4

REPORT INFORMATION
  Report Type: Spontaneous
  Country: US (occurrence: US)
  Receive Date: 20130703
  Receipt Date: 20131010
  Transmission Date: 20140711
  Serious: No
  Sender: FDA-Public Use
  Company Number: US-PFIZER INC-2013192658

PATIENT
  Age: 76 Year
  Sex: Female
  Weight: 68.48 kg

DRUGS (4)
  1. REVATIO [Suspect]
     Indication: PULMONARY HYPERTENSION
     Dosage: 40 MG (TWO 20MG TABLETS), 3X/DAY
     Route: 048
     Dates: start: 2012
  2. REVATIO [Suspect]
     Dosage: 20 MG, 3X/DAY
     Dates: start: 201309
  3. METOPROLOL TARTRATE [Concomitant]
     Indication: HYPERTENSION
     Dosage: 25 MG, 2X/DAY
  4. PLAVIX [Concomitant]
     Dosage: 75 MG, 1X/DAY

REACTIONS (4)
  - Hypersensitivity [Unknown]
  - Scratch [Unknown]
  - Contusion [Unknown]
  - Pruritus [Not Recovered/Not Resolved]
